FAERS Safety Report 5367566-9 (Version None)
Quarter: 2007Q2

REPORT INFORMATION
  Report Type: 
  Country: None (occurrence: None)
  Receive Date: 20070622
  Receipt Date: 20061220
  Transmission Date: 20071010
  Serious: No
  Sender: FDA-Public Use
  Company Number: US-ASTRAZENECA-2006UW28360

PATIENT
  Sex: Male
  Weight: 93 kg

DRUGS (7)
  1. PULMICORT [Suspect]
     Indication: RHINITIS SEASONAL
     Route: 055
     Dates: start: 20061205
  2. COUMADIN [Concomitant]
  3. ZYRTEC [Concomitant]
  4. FLONASE [Concomitant]
  5. ATROVENT [Concomitant]
  6. ZANTAC [Concomitant]
  7. LEXAPRO [Concomitant]

REACTIONS (2)
  - RETCHING [None]
  - VOMITING [None]
